FAERS Safety Report 8393782 (Version 2)
Quarter: 2013Q2

REPORT INFORMATION
  Report Type: Spontaneous
  Country: US (occurrence: US)
  Receive Date: 20120207
  Receipt Date: 20130418
  Transmission Date: 20140414
  Serious: Yes (Hospitalization, Other)
  Sender: FDA-Public Use
  Company Number: US-ROCHE-1036612

PATIENT
  Age: 28 Year
  Sex: Male
  Weight: 95.34 kg

DRUGS (1)
  1. ACCUTANE [Suspect]
     Indication: ACNE
     Route: 065
     Dates: start: 198211, end: 198506

REACTIONS (7)
  - Crohn^s disease [Unknown]
  - Small intestinal obstruction [Unknown]
  - Inflammatory bowel disease [Unknown]
  - Depression [Unknown]
  - Injury [Unknown]
  - Large intestine polyp [Unknown]
  - Anal fissure [Unknown]
